FAERS Safety Report 8887259 (Version 2)
Quarter: 2013Q1

REPORT INFORMATION
  Report Type: Spontaneous
  Country: US (occurrence: US)
  Receive Date: 20121102
  Receipt Date: 20130117
  Transmission Date: 20140127
  Serious: No
  Sender: FDA-Public Use
  Company Number: US-PFIZER INC-2012268385

PATIENT
  Age: 53 Year
  Sex: Female
  Weight: 78 kg

DRUGS (5)
  1. PREMARIN VAGINAL CREAM [Suspect]
     Dosage: UNK
     Route: 067
     Dates: start: 2011, end: 201210
  2. ASPIRIN [Concomitant]
     Dosage: UNK
  3. FOLIC ACID [Concomitant]
     Dosage: UNK
  4. SIMVASTATIN [Concomitant]
     Indication: BLOOD CHOLESTEROL INCREASED
     Dosage: UNK
  5. SYNTHROID [Concomitant]
     Dosage: UNK

REACTIONS (2)
  - Vaginal disorder [Not Recovered/Not Resolved]
  - Vulvovaginal pain [Not Recovered/Not Resolved]
